FAERS Safety Report 25758177 (Version 2)
Quarter: 2025Q3

REPORT INFORMATION
  Report Type: Report from Study
  Country: LB (occurrence: LB)
  Receive Date: 20250904
  Receipt Date: 20250915
  Transmission Date: 20251021
  Serious: Yes (Other)
  Sender: BEIGENE
  Company Number: LB-ROCHE-10000328123

PATIENT

DRUGS (2)
  1. BRUKINSA [Suspect]
     Active Substance: ZANUBRUTINIB
     Indication: Mantle cell lymphoma
  2. BRUKINSA [Suspect]
     Active Substance: ZANUBRUTINIB

REACTIONS (1)
  - Disease progression [Unknown]
